FAERS Safety Report 25488218 (Version 1)
Quarter: 2025Q2

REPORT INFORMATION
  Report Type: Report from Study
  Country: MX (occurrence: MX)
  Receive Date: 20250627
  Receipt Date: 20250627
  Transmission Date: 20250717
  Serious: Yes (Other)
  Sender: JOHNSON AND JOHNSON
  Company Number: MX-JNJFOC-20250628823

PATIENT
  Age: 61 Year
  Sex: Female

DRUGS (3)
  1. SIMPONI [Suspect]
     Active Substance: GOLIMUMAB
     Indication: Ankylosing spondylitis
     Route: 058
     Dates: start: 20241223
  2. DEFLAZACORT [Concomitant]
     Active Substance: DEFLAZACORT
     Indication: Product used for unknown indication
  3. METHOTREXATE [Concomitant]
     Active Substance: METHOTREXATE
     Indication: Product used for unknown indication

REACTIONS (6)
  - Hip arthroplasty [Recovering/Resolving]
  - Malignant nipple neoplasm [Unknown]
  - Limb discomfort [Unknown]
  - Hypoaesthesia [Unknown]
  - Nipple infection [Unknown]
  - Chest pain [Unknown]

NARRATIVE: CASE EVENT DATE: 20250529
